FAERS Safety Report 8227661-3 (Version None)
Quarter: 2012Q1

REPORT INFORMATION
  Report Type: 
  Country: None (occurrence: None)
  Receive Date: 20120322
  Receipt Date: 20120310
  Transmission Date: 20120608
  Serious: Yes (Death, Hospitalization)
  Sender: FDA-Public Use
  Company Number: PA-PFIZER INC-2012070696

PATIENT
  Age: 56 Year
  Sex: Male

DRUGS (6)
  1. PANTOPRAZOLE [Suspect]
     Indication: ABDOMINAL PAIN
     Dosage: 20 MG, 1X/DAY
     Route: 048
     Dates: start: 20100927, end: 20101029
  2. TAMSULOSIN HCL [Concomitant]
  3. DEXAMETHASONE [Concomitant]
  4. THALIDOMIDE [Concomitant]
  5. FOLIC ACID [Concomitant]
  6. SEPTRAN [Concomitant]

REACTIONS (5)
  - MULTI-ORGAN FAILURE [None]
  - SEPTIC SHOCK [None]
  - INTESTINAL OBSTRUCTION [None]
  - HYPERGLYCAEMIA [None]
  - THROMBOCYTOPENIA [None]
